FAERS Safety Report 10432277 (Version 3)
Quarter: 2015Q3

REPORT INFORMATION
  Report Type: Spontaneous
  Country: US (occurrence: None)
  Receive Date: 20140815
  Receipt Date: 20150629
  Transmission Date: 20151125
  Serious: No
  Sender: FDA-Public Use
  Company Number: A-NJ2014-99063

PATIENT
  Age: 67 Year
  Sex: Female

DRUGS (3)
  1. REMODULIN [Suspect]
     Active Substance: TREPROSTINIL
     Indication: PRODUCT USED FOR UNKNOWN INDICATION
     Route: 042
  2. OPSUMIT [Suspect]
     Active Substance: MACITENTAN
     Indication: COR PULMONALE CHRONIC
     Route: 048
     Dates: start: 20140305
  3. COUMADIN [Concomitant]
     Active Substance: WARFARIN SODIUM

REACTIONS (11)
  - Infusion site haemorrhage [None]
  - Nausea [None]
  - Gastrointestinal pain [None]
  - Dizziness [None]
  - Infusion site pain [None]
  - Malaise [None]
  - Chills [None]
  - Vomiting [None]
  - Application site pruritus [None]
  - Nasopharyngitis [None]
  - Diarrhoea [None]
